FAERS Safety Report 7337871-5 (Version None)
Quarter: 2011Q1

REPORT INFORMATION
  Report Type: 
  Country: None (occurrence: None)
  Receive Date: 20110222
  Receipt Date: 20110208
  Transmission Date: 20110831
  Serious: Yes (Life-Threatening, Hospitalization)
  Sender: FDA-Public Use
  Company Number: 1000018883

PATIENT
  Age: 75 Year
  Sex: Female

DRUGS (6)
  1. NEURONTIN (GABAPEN TIN) (CAPSULES) (GABAPENTIN) [Concomitant]
  2. CITALOPRAM HYDROBROMIDE [Suspect]
     Dosage: 20 MG (20 MG,1 IN 1 D), ORAL
     Route: 048
  3. BIO-K ASPARTICO (BIO-K ASPARTICO) (TABLETS) (BIO-K ASPARTICO) [Concomitant]
  4. SINTROM [Suspect]
     Indication: ATRIAL FIBRILLATION
     Dosage: ORAL
     Route: 048
     Dates: end: 20091113
  5. ORFIDAL (LORAZEPAM) (LORAZEPAM) [Concomitant]
  6. SEGURIL (FUROSEMIDE) (TABLETS) (FUROSEMIDE) [Concomitant]

REACTIONS (5)
  - MUSCLE HAEMORRHAGE [None]
  - DYSAESTHESIA [None]
  - DRUG INTERACTION [None]
  - HAEMATOCRIT DECREASED [None]
  - BLOOD PRESSURE DECREASED [None]
